FAERS Safety Report 5870525-0 (Version None)
Quarter: 2008Q3

REPORT INFORMATION
  Report Type: 
  Country: None (occurrence: None)
  Receive Date: 20080829
  Receipt Date: 20080816
  Transmission Date: 20090109
  Serious: Yes (Hospitalization, Other)
  Sender: FDA-Public Use
  Company Number: 2008S1015048

PATIENT
  Sex: Female

DRUGS (4)
  1. VENLAFAXINE HYDROCHLORIDE [Suspect]
     Indication: FIBROMYALGIA
     Dosage: 75 MG; DAILY; ORAL, 75 MG; TWICE A DAY; ORAL
     Route: 048
     Dates: start: 20080201, end: 20080301
  2. VENLAFAXINE HYDROCHLORIDE [Suspect]
     Indication: FIBROMYALGIA
     Dosage: 75 MG; DAILY; ORAL, 75 MG; TWICE A DAY; ORAL
     Route: 048
     Dates: start: 20080301, end: 20080728
  3. TRAZODONE HCL [Concomitant]
  4. TRIAMTERENE AND HYDROCHLOROTHIAZIDE [Concomitant]

REACTIONS (28)
  - ABNORMAL SENSATION IN EYE [None]
  - ALOPECIA [None]
  - AMNESIA [None]
  - ASTHENIA [None]
  - BLOOD PRESSURE INCREASED [None]
  - CEREBROVASCULAR ACCIDENT [None]
  - CONSTIPATION [None]
  - DISTURBANCE IN ATTENTION [None]
  - DRY EYE [None]
  - DYSARTHRIA [None]
  - DYSGEUSIA [None]
  - EYE INFECTION [None]
  - EYE IRRITATION [None]
  - FATIGUE [None]
  - FEELING ABNORMAL [None]
  - HYPOAESTHESIA ORAL [None]
  - MUSCLE SPASMS [None]
  - MYALGIA [None]
  - MYOCARDIAL INFARCTION [None]
  - NIGHTMARE [None]
  - OCULAR HYPERAEMIA [None]
  - PALPITATIONS [None]
  - PARAESTHESIA ORAL [None]
  - PHOTOSENSITIVITY REACTION [None]
  - PRURITUS [None]
  - SWOLLEN TONGUE [None]
  - VISION BLURRED [None]
  - WEIGHT DECREASED [None]
